FAERS Safety Report 15484850 (Version 1)
Quarter: 2018Q4

REPORT INFORMATION
  Report Type: Spontaneous
  Country: US (occurrence: US)
  Receive Date: 20181010
  Receipt Date: 20181010
  Transmission Date: 20190205
  Serious: No
  Sender: FDA-Public Use
  Company Number: US-ROCHE-2048429

PATIENT
  Sex: Male

DRUGS (1)
  1. ZELBORAF [Suspect]
     Active Substance: VEMURAFENIB
     Indication: HAIRY CELL LEUKAEMIA
     Route: 048
     Dates: start: 20171121

REACTIONS (5)
  - Intentional product use issue [Unknown]
  - Off label use [Unknown]
  - Heart rate increased [Unknown]
  - Chills [Unknown]
  - Urticaria [Unknown]
